FAERS Safety Report 25411291 (Version 1)
Quarter: 2025Q2

REPORT INFORMATION
  Report Type: Report from Study
  Country: JP (occurrence: JP)
  Receive Date: 20250609
  Receipt Date: 20250609
  Transmission Date: 20250716
  Serious: Yes (Death, Other)
  Sender: ROCHE
  Company Number: JP-ROCHE-10000303699

PATIENT

DRUGS (2)
  1. RITUXIMAB [Suspect]
     Active Substance: RITUXIMAB
     Indication: Thrombocytopenic purpura
     Route: 065
  2. RITUXIMAB [Suspect]
     Active Substance: RITUXIMAB
     Indication: Thrombotic microangiopathy

REACTIONS (13)
  - Sepsis [Fatal]
  - Pneumonia [Unknown]
  - Biliary tract infection [Unknown]
  - Cytomegalovirus infection reactivation [Unknown]
  - Febrile neutropenia [Unknown]
  - Urinary tract infection [Unknown]
  - Enterocolitis infectious [Unknown]
  - Large intestine perforation [Fatal]
  - Lower gastrointestinal haemorrhage [Unknown]
  - Seizure [Unknown]
  - Uveitis [Unknown]
  - Alanine aminotransferase increased [Unknown]
  - Intestinal perforation [Fatal]
